FAERS Safety Report 11160915 (Version 4)
Quarter: 2018Q3

REPORT INFORMATION
  Report Type: Spontaneous
  Country: US (occurrence: US)
  Receive Date: 20150604
  Receipt Date: 20180914
  Transmission Date: 20181010
  Serious: No
  Sender: FDA-Public Use
  Company Number: US-SA-2014SA071347

PATIENT
  Age: 67 Year
  Sex: Female

DRUGS (10)
  1. SOLOSTAR [Suspect]
     Active Substance: DEVICE
     Indication: TYPE 2 DIABETES MELLITUS
     Dates: start: 201306
  2. NOVOLOG [Concomitant]
     Active Substance: INSULIN ASPART
     Dosage: 47 DF,QD
  3. LUCENTIS [Concomitant]
     Active Substance: RANIBIZUMAB
     Indication: ILL-DEFINED DISORDER
     Dosage: UNK
  4. SOLOSTAR [Suspect]
     Active Substance: DEVICE
     Dates: start: 201306
  5. LANTUS SOLOSTAR [Suspect]
     Active Substance: INSULIN GLARGINE
     Dosage: 50 DF,HS
     Route: 058
  6. LANTUS SOLOSTAR [Suspect]
     Active Substance: INSULIN GLARGINE
     Indication: TYPE 2 DIABETES MELLITUS
     Dosage: 40 DF,QD
     Route: 058
     Dates: start: 201306
  7. LANTUS SOLOSTAR [Suspect]
     Active Substance: INSULIN GLARGINE
     Dosage: 55 DF,QD
     Route: 058
  8. LANTUS SOLOSTAR [Suspect]
     Active Substance: INSULIN GLARGINE
     Dosage: 60 DF,QD
     Route: 058
  9. LANTUS SOLOSTAR [Suspect]
     Active Substance: INSULIN GLARGINE
     Dosage: 50 DF,QD
     Route: 058
  10. LANTUS [Suspect]
     Active Substance: INSULIN GLARGINE
     Indication: PRODUCT USED FOR UNKNOWN INDICATION
     Dosage: UNK UNK, UNK

REACTIONS (10)
  - Glycosylated haemoglobin increased [Unknown]
  - Tremor [Recovered/Resolved]
  - Device issue [Unknown]
  - Injection site haemorrhage [Unknown]
  - Product use issue [Unknown]
  - Injection site pain [Unknown]
  - Hypoglycaemia [Unknown]
  - Blood glucose increased [Unknown]
  - Anxiety disorder [Unknown]
  - Drug dose omission [Unknown]

NARRATIVE: CASE EVENT DATE: 201610
